FAERS Safety Report 7226518-4 (Version None)
Quarter: 2011Q1

REPORT INFORMATION
  Report Type: 
  Country: None (occurrence: None)
  Receive Date: 20110114
  Receipt Date: 20110105
  Transmission Date: 20110831
  Serious: Yes (Congenital Anomaly, Other)
  Sender: FDA-Public Use
  Company Number: DE-JNJFOC-20101207863

PATIENT
  Sex: Female
  Weight: 3.9 kg

DRUGS (1)
  1. REMICADE [Suspect]
     Indication: DRUG EXPOSURE DURING PREGNANCY
     Route: 042

REACTIONS (2)
  - DRUG EXPOSURE VIA BREAST MILK [None]
  - CONGENITAL HEART VALVE DISORDER [None]
